FAERS Safety Report 18749304 (Version 1)
Quarter: 2021Q1

REPORT INFORMATION
  Report Type: Spontaneous
  Country: CA (occurrence: CA)
  Receive Date: 20210116
  Receipt Date: 20210116
  Transmission Date: 20210419
  Serious: Yes (Death, Hospitalization)
  Sender: FDA-Public Use
  Company Number: CA-ACCORD-214113

PATIENT
  Age: 59 Year
  Sex: Female
  Weight: 47 kg

DRUGS (19)
  1. JANUVIA [Concomitant]
     Active Substance: SITAGLIPTIN PHOSPHATE
  2. RANITIDINE. [Concomitant]
     Active Substance: RANITIDINE
  3. CLOBETASOL [Concomitant]
     Active Substance: CLOBETASOL
  4. DEXAMETHASONE. [Concomitant]
     Active Substance: DEXAMETHASONE
     Route: 065
  5. ONDANSETRON [Concomitant]
     Active Substance: ONDANSETRON
  6. OXAZEPAM. [Concomitant]
     Active Substance: OXAZEPAM
  7. CYCLOPHOSPHAMIDE/CYCLOPHOSPHAMIDE MONOHYDRATE [Suspect]
     Active Substance: CYCLOPHOSPHAMIDE
     Indication: BREAST CANCER
  8. LORAZEPAM. [Concomitant]
     Active Substance: LORAZEPAM
  9. PEGFILGRASTIM [Concomitant]
     Active Substance: PEGFILGRASTIM
  10. DOXORUBICIN [Suspect]
     Active Substance: DOXORUBICIN
     Indication: BREAST CANCER
  11. PACLITAXEL/PACLITAXEL LIPOSOME [Suspect]
     Active Substance: PACLITAXEL
     Indication: BREAST CANCER
  12. DIPHENHYDRAMINE. [Concomitant]
     Active Substance: DIPHENHYDRAMINE
  13. FILGRASTIM [Concomitant]
     Active Substance: FILGRASTIM
  14. JARDIANCE [Concomitant]
     Active Substance: EMPAGLIFLOZIN
  15. ROSUVASTATIN. [Concomitant]
     Active Substance: ROSUVASTATIN
  16. PROCHLORPERAZINE. [Suspect]
     Active Substance: PROCHLORPERAZINE
     Indication: BREAST CANCER
  17. EMEND [Concomitant]
     Active Substance: APREPITANT
  18. TYLENOL [Concomitant]
     Active Substance: ACETAMINOPHEN
  19. DIAMICRON [Concomitant]
     Active Substance: GLICLAZIDE

REACTIONS (1)
  - Febrile neutropenia [Fatal]
